FAERS Safety Report 4635156-9 (Version None)
Quarter: 2005Q2

REPORT INFORMATION
  Report Type: 
  Country: None (occurrence: None)
  Receive Date: 20050414
  Receipt Date: 20050406
  Transmission Date: 20051028
  Serious: Yes (Hospitalization)
  Sender: FDA-Public Use
  Company Number: US-GLAXOSMITHKLINE-A0553003A

PATIENT
  Sex: Female

DRUGS (3)
  1. PAXIL [Suspect]
     Indication: DEPRESSION
     Dosage: 10MG UNKNOWN
     Route: 048
     Dates: start: 20020101
  2. PAXIL CR [Suspect]
     Indication: DEPRESSION
     Dosage: 25MG UNKNOWN
     Route: 048
  3. COUMADIN [Suspect]

REACTIONS (14)
  - AGGRESSION [None]
  - AMNESIA [None]
  - ANXIETY [None]
  - CONFUSIONAL STATE [None]
  - DRUG DEPENDENCE [None]
  - DRUG INTERACTION [None]
  - EATING DISORDER [None]
  - MIDDLE INSOMNIA [None]
  - NERVOUS SYSTEM DISORDER [None]
  - OBSESSIVE THOUGHTS [None]
  - OVERDOSE [None]
  - RESTLESSNESS [None]
  - SELF-INJURIOUS IDEATION [None]
  - WEIGHT INCREASED [None]
